FAERS Safety Report 25191555 (Version 1)
Quarter: 2025Q2

REPORT INFORMATION
  Report Type: Spontaneous
  Country: US (occurrence: None)
  Receive Date: 20250411
  Receipt Date: 20250411
  Transmission Date: 20250717
  Serious: No
  Sender: FDA-CTU
  Company Number: None

PATIENT
  Age: 43 Year
  Sex: Male

DRUGS (2)
  1. RINVOQ [Suspect]
     Active Substance: UPADACITINIB
     Indication: Ankylosing spondylitis
     Dosage: 1 MG DAILY ORAL
     Route: 048
     Dates: start: 20241230, end: 20250315
  2. RINVOQ [Concomitant]
     Active Substance: UPADACITINIB
     Dates: start: 20241230, end: 20250315

REACTIONS (2)
  - Angina pectoris [None]
  - Chest pain [None]

NARRATIVE: CASE EVENT DATE: 20250408
